FAERS Safety Report 4277693-5 (Version None)
Quarter: 2004Q1

REPORT INFORMATION
  Report Type: 
  Country: None (occurrence: None)
  Receive Date: 20040121
  Receipt Date: 20040102
  Transmission Date: 20041129
  Serious: Yes (Hospitalization)
  Sender: FDA-Public Use
  Company Number: AU_040107327

PATIENT
  Age: 2 Year
  Sex: Female
  Weight: 17 kg

DRUGS (1)
  1. CECLOR [Suspect]
     Indication: BRONCHIOLITIS
     Dates: start: 20030722, end: 20030729

REACTIONS (2)
  - NEPHROTIC SYNDROME [None]
  - RASH [None]
